FAERS Safety Report 8003329-3 (Version None)
Quarter: 2011Q4

REPORT INFORMATION
  Report Type: 
  Country: None (occurrence: None)
  Receive Date: 20111222
  Receipt Date: 20111220
  Transmission Date: 20120403
  Serious: No
  Sender: FDA-Public Use
  Company Number: US-TEVA-314505USA

PATIENT
  Sex: Male
  Weight: 108.51 kg

DRUGS (1)
  1. PROAIR HFA [Suspect]
     Dosage: 22.5 MICROGRAM;
     Route: 055
     Dates: start: 20080101

REACTIONS (1)
  - DIZZINESS [None]
